FAERS Safety Report 14776335 (Version 2)
Quarter: 2019Q2

REPORT INFORMATION
  Report Type: Spontaneous
  Country: US (occurrence: US)
  Receive Date: 20180418
  Receipt Date: 20190526
  Transmission Date: 20190711
  Serious: No
  Sender: FDA-Public Use
  Company Number: US-JNJFOC-20180334294

PATIENT
  Sex: Female

DRUGS (2)
  1. ZYRTEC [Suspect]
     Active Substance: CETIRIZINE HYDROCHLORIDE
     Indication: PRODUCT USED FOR UNKNOWN INDICATION
     Route: 065
  2. ZYRTEC [Suspect]
     Active Substance: CETIRIZINE HYDROCHLORIDE
     Route: 065

REACTIONS (5)
  - Urticaria [Not Recovered/Not Resolved]
  - Pruritus [Not Recovered/Not Resolved]
  - Oral pruritus [Not Recovered/Not Resolved]
  - Feeling abnormal [Not Recovered/Not Resolved]
  - Condition aggravated [Not Recovered/Not Resolved]
